FAERS Safety Report 5215413-8 (Version None)
Quarter: 2007Q1

REPORT INFORMATION
  Report Type: 
  Country: None (occurrence: None)
  Receive Date: 20070118
  Receipt Date: 20070103
  Transmission Date: 20070707
  Serious: Yes (Hospitalization)
  Sender: FDA-Public Use
  Company Number: 2007US000064

PATIENT
  Age: 7 Year
  Sex: Male

DRUGS (12)
  1. PROGRAF [Suspect]
     Indication: RENAL TRANSPLANT
     Dates: start: 20050606
  2. ZENAPAX [Suspect]
     Indication: RENAL TRANSPLANT
     Dosage: SEE IMAGE
     Route: 042
     Dates: start: 20050606, end: 20050606
  3. ZENAPAX [Suspect]
     Indication: RENAL TRANSPLANT
     Dosage: SEE IMAGE
     Route: 042
     Dates: start: 20050621, end: 20050621
  4. ZENAPAX [Suspect]
     Indication: RENAL TRANSPLANT
     Dosage: SEE IMAGE
     Route: 042
     Dates: start: 20050705, end: 20050705
  5. ZENAPAX [Suspect]
     Indication: RENAL TRANSPLANT
     Dosage: SEE IMAGE
     Route: 042
     Dates: start: 20050719, end: 20050719
  6. ZENAPAX [Suspect]
     Indication: RENAL TRANSPLANT
     Dosage: SEE IMAGE
     Route: 042
     Dates: start: 20050802, end: 20050802
  7. ZENAPAX [Suspect]
     Indication: RENAL TRANSPLANT
     Dosage: SEE IMAGE
     Route: 042
     Dates: start: 20050823, end: 20050823
  8. ZENAPAX [Suspect]
     Indication: RENAL TRANSPLANT
     Dosage: SEE IMAGE
     Route: 042
     Dates: start: 20051004, end: 20051004
  9. ZENAPAX [Suspect]
     Indication: RENAL TRANSPLANT
     Dosage: SEE IMAGE
     Route: 042
     Dates: start: 20051206, end: 20051206
  10. ZENAPAX [Suspect]
     Indication: RENAL TRANSPLANT
     Dosage: SEE IMAGE
     Route: 042
     Dates: start: 20051108, end: 20061108
  11. NIFEREX (FOLIC ACID) [Concomitant]
  12. CIPRODEX (DEXAMETHASONE, CIPROFLOXACIN) [Concomitant]

REACTIONS (1)
  - PYELONEPHRITIS [None]
